FAERS Safety Report 23048435 (Version 1)
Quarter: 2023Q4

REPORT INFORMATION
  Report Type: Spontaneous
  Country: US (occurrence: US)
  Receive Date: 20231010
  Receipt Date: 20231010
  Transmission Date: 20240109
  Serious: Yes (Other)
  Sender: FDA-Public Use
  Company Number: US-AUROBINDO-AUR-APL-2023-062236

PATIENT
  Age: 35 Year
  Sex: Female

DRUGS (1)
  1. KETAMINE HYDROCHLORIDE [Suspect]
     Active Substance: KETAMINE HYDROCHLORIDE
     Indication: Product used for unknown indication
     Dosage: 1200 MILLIGRAM
     Route: 048

REACTIONS (5)
  - Hypoxia [Recovering/Resolving]
  - Mental status changes [Recovering/Resolving]
  - Increased bronchial secretion [Recovering/Resolving]
  - Overdose [Unknown]
  - Off label use [Unknown]
